FAERS Safety Report 4373447-X (Version None)
Quarter: 2004Q2

REPORT INFORMATION
  Report Type: 
  Country: None (occurrence: None)
  Receive Date: 20040603
  Receipt Date: 20031024
  Transmission Date: 20050107
  Serious: Yes (Hospitalization)
  Sender: FDA-Public Use
  Company Number: 2002094423DE

PATIENT
  Age: 31 Year
  Sex: Female

DRUGS (6)
  1. CAMPTOSAR [Suspect]
     Indication: COLON CANCER
     Dosage: SEE IMAGE
     Route: 042
     Dates: start: 20011002, end: 20011117
  2. CAMPTOSAR [Suspect]
     Indication: COLON CANCER
     Dosage: SEE IMAGE
     Route: 042
     Dates: start: 20011207, end: 20011221
  3. FLUOROURACIL [Suspect]
     Indication: COLON CANCER
     Dosage: SEE IMAGE
     Route: 042
     Dates: start: 20011102, end: 20011117
  4. FLUOROURACIL [Suspect]
     Indication: COLON CANCER
     Dosage: SEE IMAGE
     Route: 042
     Dates: start: 20011207, end: 20011221
  5. CALCIUM FOLINATE (CALCIUMFOLINTE) SOLUTIN, STERILE [Suspect]
     Dosage: SEE IMAGE
     Route: 042
     Dates: start: 20011102, end: 20011117
  6. CALCIUM FOLINATE (CALCIUMFOLINTE) SOLUTIN, STERILE [Suspect]
     Dosage: SEE IMAGE
     Route: 042
     Dates: start: 20011207, end: 20011221

REACTIONS (3)
  - ANOREXIA [None]
  - DIARRHOEA [None]
  - GASTROINTESTINAL PAIN [None]
